FAERS Safety Report 6393065-1 (Version None)
Quarter: 2009Q4

REPORT INFORMATION
  Report Type: 
  Country: None (occurrence: None)
  Receive Date: 20091008
  Receipt Date: 20090928
  Transmission Date: 20100525
  Serious: Yes (Other)
  Sender: FDA-Public Use
  Company Number: US-ROCHE-643206

PATIENT
  Sex: Female

DRUGS (2)
  1. PEGASYS [Suspect]
     Indication: HEPATITIS C
     Dosage: FORM: PFS (PRE-FILLED SYRINGE)
     Route: 065
     Dates: start: 20090615, end: 20090720
  2. RIBAVIRIN [Suspect]
     Indication: HEPATITIS C
     Dosage: DIVIDED DOSES
     Route: 065
     Dates: start: 20090615, end: 20090720

REACTIONS (5)
  - ALOPECIA [None]
  - FATIGUE [None]
  - INFLUENZA [None]
  - LOSS OF CONSCIOUSNESS [None]
  - PAIN [None]
